FAERS Safety Report 10017532 (Version 2)
Quarter: 2014Q1

REPORT INFORMATION
  Report Type: Spontaneous
  Country: US (occurrence: US)
  Receive Date: 20140318
  Receipt Date: 20140325
  Transmission Date: 20141002
  Serious: Yes (Other)
  Sender: FDA-Public Use
  Company Number: US-RB-063844-14

PATIENT
  Age: 53 Year
  Sex: Female

DRUGS (1)
  1. MUCINEX FAST MAX SEVERE COLD, FLU, THROAT LIQUID [Suspect]
     Indication: PRODUCT USED FOR UNKNOWN INDICATION
     Dosage: TOOK LAST ON 06/MAR/2014
     Route: 048
     Dates: start: 20140303

REACTIONS (5)
  - Eye swelling [Recovered/Resolved]
  - Swelling [Recovered/Resolved]
  - Dysphagia [Recovered/Resolved]
  - Foreign body sensation in eyes [Recovered/Resolved]
  - Sensation of foreign body [Recovered/Resolved]
